FAERS Safety Report 7394227-7 (Version None)
Quarter: 2011Q2

REPORT INFORMATION
  Report Type: 
  Country: None (occurrence: None)
  Receive Date: 20110405
  Receipt Date: 20110331
  Transmission Date: 20111010
  Serious: Yes (Hospitalization)
  Sender: FDA-Public Use
  Company Number: GB-PFIZER INC-2011072535

PATIENT
  Age: 31 Year
  Sex: Male

DRUGS (2)
  1. CHAMPIX [Suspect]
     Indication: SMOKING CESSATION THERAPY
     Dosage: 0.5 MG, UNK
     Route: 048
     Dates: start: 20110308, end: 20110309
  2. CARBAMAZEPINE [Concomitant]
     Indication: EPILEPSY
     Dosage: 1000 MG, 1X/DAY
     Route: 048
     Dates: start: 20060101

REACTIONS (1)
  - GRAND MAL CONVULSION [None]
